FAERS Safety Report 10074669 (Version 1)
Quarter: 2014Q2

REPORT INFORMATION
  Report Type: Spontaneous
  Country: HU (occurrence: HU)
  Receive Date: 20140414
  Receipt Date: 20140414
  Transmission Date: 20141212
  Serious: Yes (Disabling)
  Sender: FDA-Public Use
  Company Number: HU-ROCHE-1377774

PATIENT
  Age: 73 Year
  Sex: Female

DRUGS (4)
  1. AVASTIN [Suspect]
     Indication: AGE-RELATED MACULAR DEGENERATION
     Dosage: FORM STRENGTH: 25 MG/ML?DOSE: 1.25 MG IN 0.05 ML INJECTED INTO THE VITREOUS CAVITY
     Route: 031
     Dates: start: 20140210
  2. ACETYLSALICYLIC ACID [Suspect]
     Indication: PRODUCT USED FOR UNKNOWN INDICATION
     Route: 048
  3. CONCOR [Concomitant]
     Indication: HYPERTONIA
     Dosage: 1 TABLET DAILY
     Route: 048
  4. CONCOR [Concomitant]
     Indication: HYPERTENSION

REACTIONS (4)
  - Retinal haemorrhage [Not Recovered/Not Resolved]
  - Visual acuity reduced [Not Recovered/Not Resolved]
  - Off label use [Unknown]
  - Off label use [Unknown]
